FAERS Safety Report 6785056 (Version 4)
Quarter: 2013Q3

REPORT INFORMATION
  Report Type: Spontaneous
  Country: US (occurrence: US)
  Receive Date: 20081010
  Receipt Date: 20130718
  Transmission Date: 20140515
  Serious: Yes (Other)
  Sender: FDA-Public Use
  Company Number: US-PFIZER INC-2008083120

PATIENT
  Age: 58 Year
  Sex: Female
  Weight: 94.33 kg

DRUGS (3)
  1. CELEBREX [Suspect]
     Indication: OSTEOARTHRITIS
     Dosage: 200 MG, 1X/DAY
     Route: 048
     Dates: start: 2000, end: 200810
  2. NORVASC [Concomitant]
     Dosage: UNK
  3. LIPITOR [Concomitant]
     Dosage: UNK

REACTIONS (8)
  - Erosive oesophagitis [Unknown]
  - Gastrointestinal erosion [Unknown]
  - Anorectal disorder [Unknown]
  - Skin erosion [Unknown]
  - Blood urine present [Unknown]
  - Chest pain [Unknown]
  - Oropharyngeal pain [Unknown]
  - Hypertension [Unknown]
